FAERS Safety Report 14457684 (Version 1)
Quarter: 2018Q1

REPORT INFORMATION
  Report Type: Spontaneous
  Country: FI (occurrence: FI)
  Receive Date: 20180130
  Receipt Date: 20180130
  Transmission Date: 20180509
  Serious: Yes (Death, Other)
  Sender: FDA-Public Use
  Company Number: PHHY2017FI199658

PATIENT
  Age: 74 Year
  Sex: Male

DRUGS (1)
  1. METHOTREXATE. [Suspect]
     Active Substance: METHOTREXATE
     Indication: PRODUCT USED FOR UNKNOWN INDICATION
     Dosage: 5 MG, QD (IN THE EVENINGS)
     Route: 065

REACTIONS (9)
  - Neutropenia [Unknown]
  - General physical health deterioration [Unknown]
  - Sepsis [Fatal]
  - Transcription medication error [Unknown]
  - Infection [Unknown]
  - Accidental overdose [Unknown]
  - Cardiac failure [Unknown]
  - Anaemia [Unknown]
  - Inappropriate schedule of drug administration [Unknown]
